FAERS Safety Report 8581949-5 (Version None)
Quarter: 2012Q2

REPORT INFORMATION
  Report Type: 
  Country: None (occurrence: None)
  Receive Date: 20120423
  Receipt Date: 20100831
  Transmission Date: 20120825
  Serious: Yes (Other)
  Sender: FDA-Public Use
  Company Number: PHHY2010US49894

PATIENT
  Sex: Female
  Weight: 59.4 kg

DRUGS (1)
  1. EXJADE [Suspect]
     Indication: NEOPLASM
     Dosage: 750 MG, TID, ORAL
     Route: 048
     Dates: start: 20100601

REACTIONS (2)
  - DIARRHOEA [None]
  - DEAFNESS [None]
